FAERS Safety Report 23464359 (Version 1)
Quarter: 2024Q1

REPORT INFORMATION
  Report Type: Report from Study
  Country: IE (occurrence: IE)
  Receive Date: 20240201
  Receipt Date: 20240201
  Transmission Date: 20240410
  Serious: Yes (Other)
  Sender: FDA-Public Use
  Company Number: IE-002147023-NVSC2023IE211112

PATIENT
  Sex: Female

DRUGS (1)
  1. KESIMPTA [Suspect]
     Active Substance: OFATUMUMAB
     Indication: Relapsing-remitting multiple sclerosis
     Dosage: 20 MG, QW (20 MG ONCE WEEKLY FOR WEEKS 0, 1, 2 AND 4. THEN ONCE MONTHLY)
     Route: 058
     Dates: start: 20230926

REACTIONS (5)
  - Lower respiratory tract infection [Unknown]
  - Multiple sclerosis relapse [Unknown]
  - Sinusitis [Unknown]
  - Influenza like illness [Unknown]
  - Fatigue [Unknown]
